FAERS Safety Report 8499806-1 (Version None)
Quarter: 2012Q3

REPORT INFORMATION
  Report Type: 
  Country: None (occurrence: None)
  Receive Date: 20120710
  Receipt Date: 20120705
  Transmission Date: 20120928
  Serious: No
  Sender: FDA-Public Use
  Company Number: US-PFIZER INC-2012162045

PATIENT
  Sex: Female

DRUGS (3)
  1. LYRICA [Suspect]
     Indication: SPINAL OSTEOARTHRITIS
  2. LYRICA [Suspect]
     Indication: PAIN IN EXTREMITY
     Dosage: 150 MG, DAILY
     Route: 048
  3. LYRICA [Suspect]
     Indication: INTERVERTEBRAL DISC DEGENERATION

REACTIONS (1)
  - ANORGASMIA [None]
